FAERS Safety Report 8420250-7 (Version None)
Quarter: 2012Q2

REPORT INFORMATION
  Report Type: 
  Country: None (occurrence: None)
  Receive Date: 20120607
  Receipt Date: 20120529
  Transmission Date: 20120825
  Serious: Yes (Hospitalization)
  Sender: FDA-Public Use
  Company Number: SK-JNJFOC-20110813060

PATIENT
  Sex: Female
  Weight: 62 kg

DRUGS (10)
  1. ZODAC [Concomitant]
  2. ZOPICLONE [Concomitant]
  3. FLUVOXAMINE MALEATE [Concomitant]
  4. HALOPERIDOL [Concomitant]
  5. METHOTREXATE [Concomitant]
     Indication: PSORIASIS
  6. USTEKINUMAB [Suspect]
     Indication: PSORIASIS
     Route: 058
     Dates: start: 20110516, end: 20110516
  7. ECOBEC [Concomitant]
  8. DIPYRONE TAB [Concomitant]
  9. PROTHAZIN [Concomitant]
  10. USTEKINUMAB [Suspect]
     Route: 058
     Dates: start: 20110401

REACTIONS (2)
  - GRAND MAL CONVULSION [None]
  - HEAT EXHAUSTION [None]
